FAERS Safety Report 16506852 (Version 1)
Quarter: 2019Q3

REPORT INFORMATION
  Report Type: Spontaneous
  Country: US (occurrence: US)
  Receive Date: 20190701
  Receipt Date: 20190701
  Transmission Date: 20191004
  Serious: No
  Sender: FDA-Public Use
  Company Number: US-SHIRE-US201921119

PATIENT
  Age: 7 Year
  Sex: Male
  Weight: 36.28 kg

DRUGS (1)
  1. VYVANSE [Suspect]
     Active Substance: LISDEXAMFETAMINE DIMESYLATE
     Indication: ATTENTION DEFICIT/HYPERACTIVITY DISORDER
     Dosage: 20 MILLIGRAM, 1X/DAY:QD
     Route: 048
     Dates: start: 20190622

REACTIONS (2)
  - Eyelid function disorder [Not Recovered/Not Resolved]
  - Posture abnormal [Not Recovered/Not Resolved]

NARRATIVE: CASE EVENT DATE: 20190622
